FAERS Safety Report 9038939 (Version 1)
Quarter: 2013Q1

REPORT INFORMATION
  Report Type: Report from Study
  Country: US (occurrence: US)
  Receive Date: 20130129
  Receipt Date: 20130129
  Transmission Date: 20140127
  Serious: No
  Sender: FDA-Public Use
  Company Number: US-ABBOTT-12P-163-0933302-00

PATIENT
  Age: 38 Year
  Sex: Male

DRUGS (18)
  1. HUMIRA 40 MG/0.8 ML PEN [Suspect]
     Indication: CROHN^S DISEASE
     Dates: start: 20120308
  2. LISINOPRIL [Concomitant]
     Indication: PRODUCT USED FOR UNKNOWN INDICATION
     Dosage: DAILY
  3. HYDROCHLOROTHIAZIDE [Concomitant]
     Indication: PRODUCT USED FOR UNKNOWN INDICATION
     Dosage: DAILY
  4. PENTASA [Concomitant]
     Indication: PRODUCT USED FOR UNKNOWN INDICATION
     Dosage: DAILY
  5. DEXILANT [Concomitant]
     Indication: PRODUCT USED FOR UNKNOWN INDICATION
     Dosage: DAILY
  6. XANAX [Concomitant]
     Indication: INSOMNIA
     Dosage: AT NIGHT
  7. CELEXA [Concomitant]
     Indication: DEPRESSION
     Dosage: DAILY
  8. CELEXA [Concomitant]
  9. SPIRIVA [Concomitant]
     Indication: ASTHMA
     Dosage: DAILY
  10. SYMBICORT [Concomitant]
     Indication: ASTHMA
     Dosage: DAILY
  11. LORATADINE [Concomitant]
     Indication: HYPERSENSITIVITY
  12. BENADRYL [Concomitant]
     Indication: HYPERSENSITIVITY
     Dosage: AT NIGHT
  13. CPAP MACHINE [Concomitant]
     Indication: PRODUCT USED FOR UNKNOWN INDICATION
     Dosage: AT NIGHT
  14. ULTRAM [Concomitant]
     Indication: PAIN
     Dosage: DAILY
  15. TRAZODONE [Concomitant]
     Indication: INSOMNIA
     Dosage: AT NIGHT
  16. TYLENOL [Concomitant]
     Indication: PAIN
     Dosage: ALTERNATES WITH ASPIRIN AND IBUPROFEN 400-600MG DAILY
  17. ASPIRIN [Concomitant]
     Indication: PAIN
     Dosage: ALTERNATES WITH TYLENOL AND IBUPROFEN 400-600MG DAILY
  18. IBUPROFEN [Concomitant]
     Indication: PAIN
     Dosage: ALTERNATES WITH TYLENOL AND ASPIRIN 400-600MG DAILY

REACTIONS (5)
  - Arthropod bite [Not Recovered/Not Resolved]
  - Erythema [Not Recovered/Not Resolved]
  - Local swelling [Not Recovered/Not Resolved]
  - Pain [Not Recovered/Not Resolved]
  - Arthritis [Not Recovered/Not Resolved]
